FAERS Safety Report 5649734-1 (Version None)
Quarter: 2008Q1

REPORT INFORMATION
  Report Type: 
  Country: None (occurrence: None)
  Receive Date: 20080304
  Receipt Date: 20080222
  Transmission Date: 20080703
  Serious: Yes (Other)
  Sender: FDA-Public Use
  Company Number: IT-BOEHRINGER INGELHEIM GMBH, GERMANY-2008-DE-01138GD

PATIENT
  Age: 1 Day
  Sex: Male

DRUGS (4)
  1. RANITIDINE [Suspect]
     Route: 064
  2. METHYLPREDNISOLONE [Suspect]
     Route: 064
  3. FOLIC ACID [Suspect]
     Route: 064
  4. MESALAMINE [Suspect]
     Route: 064

REACTIONS (2)
  - JAUNDICE NEONATAL [None]
  - NEUTROPENIA [None]
